FAERS Safety Report 17559472 (Version 1)
Quarter: 2020Q1

REPORT INFORMATION
  Report Type: Spontaneous
  Country: US (occurrence: US)
  Receive Date: 20200319
  Receipt Date: 20200319
  Transmission Date: 20200409
  Serious: Yes (Other)
  Sender: FDA-Public Use
  Company Number: US-ROCHE-2568820

PATIENT
  Age: 76 Year
  Sex: Male
  Weight: 90.8 kg

DRUGS (2)
  1. RITUXAN [Suspect]
     Active Substance: RITUXIMAB
     Indication: MANTLE CELL LYMPHOMA
     Dosage: INTRAVENOUS INFUSION GIVEN ONCE EVERY 8 WEEKS ;ONGOING: NO
     Route: 042
  2. VELCADE [Concomitant]
     Active Substance: BORTEZOMIB
     Route: 065
     Dates: start: 2013

REACTIONS (6)
  - Off label use [Unknown]
  - Lymphoma [Unknown]
  - Nasopharyngitis [Not Recovered/Not Resolved]
  - White blood cell count increased [Unknown]
  - Infusion related reaction [Recovered/Resolved]
  - Intentional product use issue [Unknown]

NARRATIVE: CASE EVENT DATE: 2009
